FAERS Safety Report 8741666 (Version 3)
Quarter: 2013Q3

REPORT INFORMATION
  Report Type: Report from Study
  Country: US (occurrence: US)
  Receive Date: 20120824
  Receipt Date: 20130920
  Transmission Date: 20140515
  Serious: No
  Sender: FDA-Public Use
  Company Number: US-009507513-1208USA001324

PATIENT
  Age: 10 Year
  Sex: Male
  Weight: 28.5 kg

DRUGS (12)
  1. BLINDED ASENAPINE MALEATE-SCHIZOPHRENIA [Suspect]
     Indication: BIPOLAR I DISORDER
     Dosage: 1 DF, BID
     Route: 060
     Dates: start: 20120723, end: 20120731
  2. BLINDED PLACEBO [Suspect]
     Indication: BIPOLAR I DISORDER
     Dosage: 1 DF, BID
     Route: 060
     Dates: start: 20120723, end: 20120731
  3. BLINDED POST TRIAL THERAPY [Suspect]
     Indication: BIPOLAR I DISORDER
     Dosage: 1 DF, BID
     Route: 060
     Dates: start: 20120723, end: 20120731
  4. BLINDED PRE TRIAL THERAPY [Suspect]
     Indication: BIPOLAR I DISORDER
     Dosage: 1 DF, BID
     Route: 060
     Dates: start: 20120723, end: 20120731
  5. BLINDED ASENAPINE MALEATE-SCHIZOPHRENIA [Suspect]
     Dosage: 1 UNK, BID
     Route: 060
     Dates: start: 20120802, end: 20120807
  6. BLINDED PLACEBO [Suspect]
     Dosage: 1 UNK, BID
     Route: 060
     Dates: start: 20120802, end: 20120807
  7. BLINDED POST TRIAL THERAPY [Suspect]
     Dosage: 1 UNK, BID
     Route: 060
     Dates: start: 20120802, end: 20120807
  8. BLINDED PRE TRIAL THERAPY [Suspect]
     Dosage: 1 UNK, BID
     Route: 060
     Dates: start: 20120802, end: 20120807
  9. LURASIDONE HYDROCHLORIDE [Concomitant]
     Indication: BIPOLAR I DISORDER
     Dosage: 80 MG, QPM
     Route: 048
     Dates: start: 201203, end: 20120702
  10. TRAZODONE HYDROCHLORIDE [Concomitant]
     Indication: INSOMNIA
     Dosage: 50 MG, QPM
     Route: 048
     Dates: start: 201205, end: 20120712
  11. MELATONIN [Concomitant]
     Indication: INSOMNIA
     Dosage: 10 MG, QPM
     Route: 048
     Dates: start: 201206, end: 20120712
  12. GUANFACINE HYDROCHLORIDE [Concomitant]
     Indication: ATTENTION DEFICIT/HYPERACTIVITY DISORDER
     Dosage: 2 MG, QD
     Route: 048
     Dates: start: 201205

REACTIONS (2)
  - Oromandibular dystonia [Recovered/Resolved]
  - Dystonia [Recovered/Resolved]
